FAERS Safety Report 20091808 (Version 1)
Quarter: 2021Q4

REPORT INFORMATION
  Report Type: Spontaneous
  Country: None (occurrence: US)
  Receive Date: 20211119
  Receipt Date: 20211119
  Transmission Date: 20220303
  Serious: No
  Sender: FDA-Public Use
  Company Number: US-Vero Biotech-2122074

PATIENT

DRUGS (2)
  1. GENOSYL [Suspect]
     Active Substance: NITRIC OXIDE
     Route: 055
  2. GENOSYL [Suspect]
     Active Substance: NITRIC OXIDE

REACTIONS (5)
  - Device malfunction [None]
  - Device issue [None]
  - Exposure to toxic agent [None]
  - Device physical property issue [None]
  - No adverse event [None]

NARRATIVE: CASE EVENT DATE: 20211022
